FAERS Safety Report 12695136 (Version 1)
Quarter: 2016Q3

REPORT INFORMATION
  Report Type: Spontaneous
  Country: US (occurrence: US)
  Receive Date: 20160829
  Receipt Date: 20160829
  Transmission Date: 20161109
  Serious: Yes (Hospitalization, Other)
  Sender: FDA-Public Use
  Company Number: US-SA-2016SA153750

PATIENT
  Sex: Female

DRUGS (1)
  1. LANTUS [Suspect]
     Active Substance: INSULIN GLARGINE
     Dosage: DURATION: OVER 10 YEARS
     Route: 065
     Dates: end: 2015

REACTIONS (4)
  - Mobility decreased [Unknown]
  - Gallbladder disorder [Unknown]
  - Catheter placement [Unknown]
  - Unevaluable event [Unknown]
